FAERS Safety Report 8010277-1 (Version None)
Quarter: 2011Q4

REPORT INFORMATION
  Report Type: 
  Country: None (occurrence: None)
  Receive Date: 20111228
  Receipt Date: 20111221
  Transmission Date: 20120403
  Serious: Yes (Hospitalization)
  Sender: FDA-Public Use
  Company Number: DK-JNJFOC-20110909697

PATIENT
  Sex: Female
  Weight: 63 kg

DRUGS (6)
  1. PREDNISOLONE [Concomitant]
     Indication: SERONEGATIVE ARTHRITIS
     Route: 065
     Dates: start: 20100813, end: 20110711
  2. REMICADE [Suspect]
     Indication: RHEUMATOID ARTHRITIS
     Route: 042
     Dates: end: 20110711
  3. REMICADE [Suspect]
     Indication: SERONEGATIVE ARTHRITIS
     Route: 042
     Dates: end: 20110711
  4. REMICADE [Suspect]
     Dosage: 200 MG WEEKS 0, 2, 6,AND 8
     Route: 042
     Dates: start: 20110405, end: 20110629
  5. METHOTREXATE [Concomitant]
     Indication: RHEUMATOID ARTHRITIS
     Route: 048
     Dates: start: 20100820, end: 20110724
  6. REMICADE [Suspect]
     Dosage: 200 MG WEEKS 0, 2, 6,AND 8
     Route: 042
     Dates: start: 20110405, end: 20110629

REACTIONS (1)
  - PNEUMONIA LEGIONELLA [None]
